FAERS Safety Report 26204338 (Version 1)
Quarter: 2025Q4

REPORT INFORMATION
  Report Type: Spontaneous
  Country: IN (occurrence: IN)
  Receive Date: 20251226
  Receipt Date: 20251226
  Transmission Date: 20260118
  Serious: Yes (Death, Hospitalization, Other)
  Sender: B. BRAUN MEDICAL INC.
  Company Number: IN-B. Braun Medical Inc.-IN-BBM-202504868

PATIENT
  Sex: Male

DRUGS (5)
  1. DEXTROSE [Suspect]
     Active Substance: DEXTROSE MONOHYDRATE
     Indication: Hyperinsulinaemia
     Dosage: HIGH-CONCENTRATION GLUCOSE INFUSIONS VIA UMBILICAL VENOUS CATHETERS
  2. DEXTROSE [Suspect]
     Active Substance: DEXTROSE MONOHYDRATE
     Indication: Hypoglycaemia
  3. HEPARIN [Suspect]
     Active Substance: HEPARIN SODIUM
  4. DIAZOXIDE [Concomitant]
     Active Substance: DIAZOXIDE
     Dosage: 10 MG/KG/DAY
  5. SILDENAFIL [Concomitant]
     Active Substance: SILDENAFIL

REACTIONS (3)
  - Thrombocytopenia [Fatal]
  - Atrial thrombosis [Fatal]
  - Intraventricular haemorrhage neonatal [Fatal]
